FAERS Safety Report 8586742-5 (Version None)
Quarter: 2012Q3

REPORT INFORMATION
  Report Type: 
  Country: None (occurrence: None)
  Receive Date: 20120810
  Receipt Date: 20120731
  Transmission Date: 20120928
  Serious: Yes (Death, Hospitalization, Other)
  Sender: FDA-Public Use
  Company Number: JP-AMGEN-JPNCT2011068262

PATIENT
  Age: 48 Year
  Sex: Female
  Weight: 69 kg

DRUGS (38)
  1. ROMIPLOSTIM - KHK [Suspect]
     Dosage: 2 MUG/KG, QWK
     Route: 058
     Dates: start: 20110516, end: 20110523
  2. ROMIPLOSTIM - KHK [Suspect]
     Dosage: 7 MUG/KG, QWK
     Route: 058
     Dates: start: 20110727, end: 20110801
  3. ROMIPLOSTIM - KHK [Suspect]
     Dosage: 8 MUG/KG, QWK
     Route: 058
     Dates: start: 20110822, end: 20110822
  4. ROMIPLOSTIM - KHK [Suspect]
     Dosage: 8 MUG/KG, QWK
     Route: 058
     Dates: start: 20110829, end: 20110829
  5. ROMIPLOSTIM - KHK [Suspect]
     Dosage: 10 MUG/KG, QWK
     Route: 058
     Dates: start: 20110921, end: 20110921
  6. NASANYL [Concomitant]
     Indication: MENORRHAGIA
     Dosage: UNK
     Route: 045
  7. ROMIPLOSTIM - KHK [Suspect]
     Indication: IDIOPATHIC THROMBOCYTOPENIC PURPURA
     Dosage: 1 MUG/KG, QWK
     Route: 058
     Dates: start: 20110502, end: 20110509
  8. ROMIPLOSTIM - KHK [Suspect]
     Dosage: 10 MUG/KG, QWK
     Route: 058
     Dates: start: 20111026, end: 20111026
  9. RITUXAN [Concomitant]
     Indication: IDIOPATHIC THROMBOCYTOPENIC PURPURA
     Dosage: 500 MG, UNK
     Route: 065
     Dates: start: 20120123, end: 20120215
  10. ADONA [Concomitant]
     Indication: IDIOPATHIC THROMBOCYTOPENIC PURPURA
     Dosage: UNK
     Route: 048
     Dates: start: 20100604, end: 20110703
  11. MAGNESIUM OXIDE [Concomitant]
     Indication: CONSTIPATION
     Dosage: UNK
     Route: 048
  12. ALLOPURINOL [Concomitant]
     Indication: HYPERURICAEMIA
     Dosage: UNK
     Route: 048
  13. ROMIPLOSTIM - KHK [Suspect]
     Dosage: 10 MUG/KG, QWK
     Route: 058
     Dates: start: 20111102, end: 20111102
  14. ROMIPLOSTIM - KHK [Suspect]
     Dosage: 10 MUG/KG, QWK
     Route: 058
     Dates: start: 20111116, end: 20111116
  15. DIOVAN [Concomitant]
     Indication: HYPERTENSION
     Dosage: UNK
     Route: 048
  16. DEXAMETHASONE SODIUM PHOSPHATE [Concomitant]
     Indication: IDIOPATHIC THROMBOCYTOPENIC PURPURA
     Dosage: UNK
     Route: 048
     Dates: start: 20110808, end: 20120220
  17. ROMIPLOSTIM - KHK [Suspect]
     Dosage: 9 MUG/KG, QWK
     Route: 058
     Dates: start: 20110905, end: 20110905
  18. ROMIPLOSTIM - KHK [Suspect]
     Dosage: 10 UNK, UNK
     Dates: start: 20120218, end: 20120218
  19. ALOCHINON [Concomitant]
     Indication: HYPERTENSION
     Dosage: UNK
     Route: 048
  20. LAXOBERON [Concomitant]
     Indication: CONSTIPATION
     Dosage: UNK
     Route: 048
  21. ROMIPLOSTIM - KHK [Suspect]
     Dosage: 5 MUG/KG, QWK
     Route: 058
     Dates: start: 20110627, end: 20110704
  22. ROMIPLOSTIM - KHK [Suspect]
     Dosage: 6 MUG/KG, QWK
     Route: 058
     Dates: start: 20110711, end: 20110719
  23. ROMIPLOSTIM - KHK [Suspect]
     Dosage: 8 MUG/KG, QWK
     Route: 058
     Dates: start: 20110808, end: 20110808
  24. ROMIPLOSTIM - KHK [Suspect]
     Dosage: 5 MUG/KG, QWK
     Route: 058
     Dates: start: 20111109, end: 20111109
  25. ROMIPLOSTIM - KHK [Suspect]
     Dosage: 10 MUG/KG, QWK
     Route: 058
     Dates: start: 20111128, end: 20111128
  26. LANSOPRAZOLE [Concomitant]
     Indication: GASTROOESOPHAGEAL REFLUX DISEASE
     Dosage: UNK
     Route: 048
  27. DECADRON PHOSPHATE [Suspect]
     Indication: IDIOPATHIC THROMBOCYTOPENIC PURPURA
     Dosage: UNK
     Route: 048
     Dates: start: 20110921, end: 20120111
  28. DEPAS [Concomitant]
     Indication: ANXIETY DISORDER
     Dosage: UNK
     Route: 048
  29. LASIX [Concomitant]
     Indication: HYPERTENSION
     Dosage: UNK
     Route: 065
  30. KETOPROFEN [Concomitant]
     Indication: BACK PAIN
     Dosage: UNK
     Route: 061
  31. PREDNISOLONE [Concomitant]
     Indication: IDIOPATHIC THROMBOCYTOPENIC PURPURA
     Dosage: UNK
     Route: 048
     Dates: start: 20120112, end: 20120222
  32. GAMIMUNE N 5% [Concomitant]
     Indication: IDIOPATHIC THROMBOCYTOPENIC PURPURA
     Dosage: 20000 MG, UNK
     Route: 065
     Dates: start: 20120111, end: 20120221
  33. ALOSENN [Concomitant]
     Indication: CONSTIPATION
     Dosage: UNK
     Route: 048
  34. ROMIPLOSTIM - KHK [Suspect]
     Dosage: 3 MUG/KG, QWK
     Route: 058
     Dates: start: 20110530, end: 20110606
  35. ROMIPLOSTIM - KHK [Suspect]
     Dosage: 4 MUG/KG, QWK
     Route: 058
     Dates: start: 20120613, end: 20120620
  36. NORVASC [Concomitant]
     Indication: HYPERTENSION
     Dosage: UNK
     Route: 048
  37. MUCOSTA [Concomitant]
     Indication: GASTRITIS
     Dosage: UNK
     Route: 048
  38. ALENDRONATE SODIUM [Concomitant]
     Indication: OSTEOPOROSIS
     Dosage: UNK
     Route: 048

REACTIONS (10)
  - NEUTROPHIL COUNT INCREASED [None]
  - ANAEMIA [None]
  - BACK PAIN [None]
  - UPPER GASTROINTESTINAL HAEMORRHAGE [None]
  - GASTROINTESTINAL HAEMORRHAGE [None]
  - LIVER DISORDER [None]
  - ORAL CANDIDIASIS [None]
  - IRON DEFICIENCY ANAEMIA [None]
  - CEREBRAL HAEMORRHAGE [None]
  - WHITE BLOOD CELL COUNT INCREASED [None]
